FAERS Safety Report 9115257 (Version 4)
Quarter: 2015Q1

REPORT INFORMATION
  Report Type: Report from Study
  Country: BD (occurrence: BD)
  Receive Date: 20130225
  Receipt Date: 20140319
  Transmission Date: 20150721
  Serious: Yes (Death, Other)
  Sender: FDA-Public Use
  Company Number: PHHY2013BD017929

PATIENT
  Age: 71 Year
  Sex: Female

DRUGS (1)
  1. ACLASTA [Suspect]
     Active Substance: ZOLEDRONIC ACID
     Indication: OSTEOPOROSIS
     Dosage: ONCE YERALY
     Route: 042
     Dates: start: 20090106

REACTIONS (4)
  - Pneumonia [Fatal]
  - Lung disorder [Fatal]
  - Respiratory tract infection [Unknown]
  - Diabetes mellitus [Unknown]
